FAERS Safety Report 5730229-1 (Version None)
Quarter: 2008Q2

REPORT INFORMATION
  Report Type: 
  Country: None (occurrence: None)
  Receive Date: 20080505
  Receipt Date: 20080505
  Transmission Date: 20081010
  Serious: Yes (Hospitalization)
  Sender: FDA-Public Use
  Company Number: None

PATIENT
  Age: 95 Year
  Sex: Female
  Weight: 45.3597 kg

DRUGS (1)
  1. DIGITEK [Suspect]

REACTIONS (1)
  - THERAPEUTIC AGENT TOXICITY [None]
